FAERS Safety Report 25191583 (Version 1)
Quarter: 2025Q2

REPORT INFORMATION
  Report Type: Spontaneous
  Country: US (occurrence: None)
  Receive Date: 20250411
  Receipt Date: 20250411
  Transmission Date: 20250716
  Serious: No
  Sender: FDA-CTU
  Company Number: None

PATIENT
  Age: 53 Year
  Sex: Female

DRUGS (1)
  1. ADEMPAS [Suspect]
     Active Substance: RIOCIGUAT
     Indication: Pulmonary arterial hypertension
     Dosage: 1.5MG TID ORAL ?
     Route: 048
     Dates: start: 20241230, end: 20250325

REACTIONS (2)
  - Swelling face [None]
  - Muscle spasms [None]

NARRATIVE: CASE EVENT DATE: 20250323
